FAERS Safety Report 24618858 (Version 1)
Quarter: 2024Q4

REPORT INFORMATION
  Report Type: Spontaneous
  Country: US (occurrence: US)
  Receive Date: 20241114
  Receipt Date: 20241114
  Transmission Date: 20250115
  Serious: Yes (Life-Threatening, Hospitalization, Other)
  Sender: PFIZER
  Company Number: US-PFIZER INC-PV202400145452

PATIENT
  Age: 48 Year
  Sex: Male

DRUGS (3)
  1. LINEZOLID [Suspect]
     Active Substance: LINEZOLID
     Indication: Enterococcal infection
     Dosage: 600 MG, 2X/DAY, ON DAY +70,
  2. DAPTOMYCIN [Suspect]
     Active Substance: DAPTOMYCIN
     Indication: Enterococcal infection
     Dosage: 12 MG/KG, HIGH-DOSE EVERY 48 HOURS
  3. AMPICILLIN [Concomitant]
     Active Substance: AMPICILLIN
     Indication: Enterococcal infection
     Dosage: UNK

REACTIONS (1)
  - Drug ineffective [Recovered/Resolved]
